FAERS Safety Report 5320569-2 (Version None)
Quarter: 2007Q2

REPORT INFORMATION
  Report Type: 
  Country: None (occurrence: None)
  Receive Date: 20070509
  Receipt Date: 20070430
  Transmission Date: 20071010
  Serious: Yes (Death, Hospitalization, Other)
  Sender: FDA-Public Use
  Company Number: US-PFIZER INC-2007026049

PATIENT
  Sex: Male

DRUGS (2)
  1. ZOLOFT [Suspect]
  2. ARICEPT [Suspect]

REACTIONS (2)
  - DYSPNOEA [None]
  - HALLUCINATION [None]
